FAERS Safety Report 18603804 (Version 1)
Quarter: 2020Q4

REPORT INFORMATION
  Report Type: Spontaneous
  Country: US (occurrence: US)
  Receive Date: 20201211
  Receipt Date: 20201211
  Transmission Date: 20210114
  Serious: Yes (Hospitalization, Other)
  Sender: FDA-Public Use
  Company Number: US-HIKMA PHARMACEUTICALS USA INC.-US-H14001-20-05470

PATIENT
  Age: 43 Year
  Sex: Female
  Weight: 92 kg

DRUGS (6)
  1. LEVOFOLINIC ACID [Suspect]
     Active Substance: LEVOLEUCOVORIN
     Indication: ADENOCARCINOMA METASTATIC
     Route: 042
     Dates: start: 20200702
  2. OXALIPLATIN. [Suspect]
     Active Substance: OXALIPLATIN
     Indication: ADENOCARCINOMA METASTATIC
     Route: 042
     Dates: start: 20200702
  3. FLUOROURACIL. [Suspect]
     Active Substance: FLUOROURACIL
     Indication: ADENOCARCINOMA METASTATIC
     Route: 042
     Dates: start: 20200702
  4. ZOLBETUXIMAB. [Suspect]
     Active Substance: ZOLBETUXIMAB
     Indication: ADENOCARCINOMA METASTATIC
     Dosage: UNKNOWN
     Route: 042
     Dates: start: 20200702
  5. LOVENOX [Concomitant]
     Active Substance: ENOXAPARIN SODIUM
     Indication: PRODUCT USED FOR UNKNOWN INDICATION
     Dosage: UNKNOWN
     Route: 065
  6. FLUOROURACIL. [Suspect]
     Active Substance: FLUOROURACIL
     Route: 042

REACTIONS (7)
  - Unresponsive to stimuli [Unknown]
  - Generalised tonic-clonic seizure [Not Recovered/Not Resolved]
  - Neutropenia [Unknown]
  - Loss of consciousness [Unknown]
  - Systemic inflammatory response syndrome [Unknown]
  - Lactic acidosis [Unknown]
  - Lacunar infarction [Unknown]

NARRATIVE: CASE EVENT DATE: 20200926
